FAERS Safety Report 6273689-2 (Version None)
Quarter: 2009Q3

REPORT INFORMATION
  Report Type: 
  Country: None (occurrence: None)
  Receive Date: 20090713
  Receipt Date: 20080708
  Transmission Date: 20100115
  Serious: Yes (Other)
  Sender: FDA-Public Use
  Company Number: 574582

PATIENT
  Age: 71 Year
  Sex: Female

DRUGS (7)
  1. BONIVA [Suspect]
     Indication: OSTEOPOROSIS
     Dosage: 150 MG 1 PER 1 MONTH
     Dates: start: 20080706
  2. MAGNESIUM CITRATE (MAGNESIUM CITRATE) [Suspect]
     Indication: DRUG USE FOR UNKNOWN INDICATION
  3. CRESTOR [Concomitant]
  4. ATENOLOL [Concomitant]
  5. ARTHRIITIS MEDICATION NOS (ARTHRITIS MEDICATION NOS) [Concomitant]
  6. 1 CONCOMITANT DRUG (GENERIC UNKNOWN) [Concomitant]
  7. .. [Concomitant]

REACTIONS (3)
  - CONSTIPATION [None]
  - DIARRHOEA [None]
  - IRITIS [None]
